FAERS Safety Report 7282764-5 (Version None)
Quarter: 2011Q1

REPORT INFORMATION
  Report Type: 
  Country: None (occurrence: None)
  Receive Date: 20110209
  Receipt Date: 20101217
  Transmission Date: 20110831
  Serious: Yes (Other)
  Sender: FDA-Public Use
  Company Number: US-BAYER-200940987NA

PATIENT
  Sex: Female
  Weight: 64.853 kg

DRUGS (3)
  1. TYLENOL REGULAR [Concomitant]
     Indication: PAIN
  2. IBUPROFEN AL [Concomitant]
  3. YAZ [Suspect]
     Indication: PRODUCT USED FOR UNKNOWN INDICATION
     Dosage: 1 DF (DAILY DOSE), QD, ORAL
     Route: 048

REACTIONS (3)
  - BILIARY DYSKINESIA [None]
  - PAIN [None]
  - CHOLECYSTITIS CHRONIC [None]
